FAERS Safety Report 7352777-3 (Version None)
Quarter: 2011Q1

REPORT INFORMATION
  Report Type: 
  Country: None (occurrence: None)
  Receive Date: 20110315
  Receipt Date: 20110309
  Transmission Date: 20110831
  Serious: Yes (Hospitalization)
  Sender: FDA-Public Use
  Company Number: DE-ROCHE-511617

PATIENT
  Sex: Female
  Weight: 58 kg

DRUGS (14)
  1. CAPECITABINE [Suspect]
     Dosage: UNITS REPORTED AS 500 MG.
     Route: 048
     Dates: start: 20070503
  2. CAPECITABINE [Suspect]
     Route: 048
     Dates: start: 20070601, end: 20070609
  3. FEXOFENADIN [Concomitant]
     Dates: start: 20070419
  4. VITALIPID [Concomitant]
     Dates: start: 20070419
  5. PANTOPRAZOL [Concomitant]
     Dates: start: 20060511
  6. ETORICOXIB [Concomitant]
     Dates: start: 20070419
  7. ADDEL [Concomitant]
     Dates: start: 20070419
  8. ERYPO [Concomitant]
     Dates: start: 20070110
  9. MOMETASONE FUROATE [Concomitant]
     Dosage: MOMETASONE SALVE
     Dates: start: 20070419
  10. IRINOTECAN [Suspect]
     Dosage: DOSAGE FORM: INFUSION.
     Route: 042
     Dates: start: 20070601, end: 20070619
  11. ETORICOXIB [Concomitant]
     Dates: start: 20070418
  12. AMITRIPTYLINE HCL [Concomitant]
     Dates: start: 20060511
  13. IRINOTECAN [Suspect]
     Dosage: DOSAGE FORM: INFUSION.
     Route: 042
     Dates: start: 20070503
  14. SOLUVIT [Concomitant]
     Dates: start: 20070419

REACTIONS (2)
  - CEREBRAL INFARCTION [None]
  - ILEUS [None]
